FAERS Safety Report 4598281-7 (Version None)
Quarter: 2005Q1

REPORT INFORMATION
  Report Type: 
  Country: None (occurrence: None)
  Receive Date: 20050301
  Receipt Date: 20050301
  Transmission Date: 20050727
  Serious: Yes (Life-Threatening)
  Sender: FDA-Public Use
  Company Number: None

PATIENT
  Sex: Male

DRUGS (13)
  1. LINEZOLID [Suspect]
     Indication: OSTEOMYELITIS
     Dosage: 600 MG BID ORAL
     Route: 048
     Dates: start: 20040929, end: 20041014
  2. LINEZOLID [Suspect]
     Indication: STAPHYLOCOCCAL INFECTION
     Dosage: 600 MG BID ORAL
     Route: 048
     Dates: start: 20040929, end: 20041014
  3. PAPAIN/UREA OINTMENT [Concomitant]
  4. THIAMINE [Concomitant]
  5. APAP TAB [Concomitant]
  6. GABAPENTIN [Concomitant]
  7. DONEPEZIL HCL [Concomitant]
  8. DIGOXIN [Concomitant]
  9. CYANOCOBALAMIN [Concomitant]
  10. ASPIRIN [Concomitant]
  11. RISPERIDONE [Concomitant]
  12. SENNA [Concomitant]
  13. GLIPIZIDE [Concomitant]

REACTIONS (1)
  - THROMBOCYTOPENIA [None]
